FAERS Safety Report 5402331-5 (Version None)
Quarter: 2007Q3

REPORT INFORMATION
  Report Type: 
  Country: None (occurrence: None)
  Receive Date: 20070801
  Receipt Date: 20070724
  Transmission Date: 20080115
  Serious: Yes (Other)
  Sender: FDA-Public Use
  Company Number: JP-AVENTIS-200713822GDDC

PATIENT
  Age: 71 Year
  Sex: Female

DRUGS (4)
  1. RIFAMPICIN [Suspect]
     Indication: TUBERCULOUS PLEURISY
     Dosage: DOSE: UNK
     Route: 048
     Dates: start: 20060101, end: 20060101
  2. ISONIAZID [Suspect]
     Indication: TUBERCULOUS PLEURISY
     Dosage: DOSE: UNK
     Route: 048
     Dates: start: 20060101, end: 20060101
  3. PYRAZINAMIDE [Suspect]
     Indication: TUBERCULOUS PLEURISY
     Dosage: DOSE: UNK
     Route: 048
     Dates: start: 20060101, end: 20060101
  4. ETHAMBUTOL HYDROCHLORIDE [Suspect]
     Indication: TUBERCULOUS PLEURISY
     Dosage: DOSE: UNK
     Route: 048
     Dates: start: 20060101, end: 20060101

REACTIONS (1)
  - PANCYTOPENIA [None]
